FAERS Safety Report 12172977 (Version 1)
Quarter: 2016Q1

REPORT INFORMATION
  Report Type: Spontaneous
  Country: FR (occurrence: FR)
  Receive Date: 20160311
  Receipt Date: 20160311
  Transmission Date: 20160526
  Serious: Yes (Hospitalization, Other)
  Sender: FDA-Public Use
  Company Number: FR-JNJFOC-20160306309

PATIENT
  Age: 75 Year
  Sex: Male

DRUGS (6)
  1. BROMAZEPAM [Suspect]
     Active Substance: BROMAZEPAM
     Indication: ANXIETY DISORDER
     Dosage: 1 IN THE MORNING, 1/2 AT MIDDAY AND 1 IN THE EVENING.
     Route: 048
  2. ZOLOFT [Concomitant]
     Active Substance: SERTRALINE HYDROCHLORIDE
     Indication: DEPRESSION
     Dosage: AT MID DAY
     Route: 048
  3. RISPERDAL [Suspect]
     Active Substance: RISPERIDONE
     Indication: SCHIZOPHRENIA
     Dosage: 2 MG IN THE MORNING, 1 MG AT MIDDAY AND 3 MG IN THE EVENING.
     Route: 048
  4. LEPTICUR [Suspect]
     Active Substance: TROPATEPINE HYDROCHLORIDE
     Indication: PRODUCT USED FOR UNKNOWN INDICATION
     Dosage: 1/2 AT MIDDAY
     Route: 048
  5. GLIVEC [Concomitant]
     Active Substance: IMATINIB MESYLATE
     Indication: COLORECTAL CANCER
     Dosage: AT MIDDAY
     Route: 048
  6. LEVOMEPROMAZINE [Concomitant]
     Active Substance: LEVOMEPROMAZINE
     Indication: SCHIZOPHRENIA
     Dosage: IN THE EVENING.
     Route: 048

REACTIONS (6)
  - Off label use [Unknown]
  - Intestinal obstruction [Recovering/Resolving]
  - Incorrect dose administered [Unknown]
  - Dyspnoea [Unknown]
  - Acute kidney injury [Unknown]
  - Myocardial necrosis marker increased [Unknown]

NARRATIVE: CASE EVENT DATE: 20151119
